FAERS Safety Report 5844439-6 (Version None)
Quarter: 2008Q3

REPORT INFORMATION
  Report Type: 
  Country: None (occurrence: None)
  Receive Date: 20080813
  Receipt Date: 20080806
  Transmission Date: 20090109
  Serious: Yes (Hospitalization)
  Sender: FDA-Public Use
  Company Number: GB-AMGEN-US301146

PATIENT
  Age: 72 Year
  Sex: Female

DRUGS (11)
  1. ENBREL [Suspect]
     Indication: RHEUMATOID ARTHRITIS
  2. FERROUS SULFATE TAB [Concomitant]
     Dosage: UNKNOWN
  3. PREDNISOLONE [Concomitant]
     Dosage: UNKNOWN
  4. DICLOFENAC SODIUM [Concomitant]
     Dosage: UNKNOWN
  5. IPRATROPIUM BROMIDE [Concomitant]
     Dosage: UNKNOWN
  6. FOLIC ACID [Concomitant]
     Dosage: UNKNOWN
  7. RANITIDINE [Concomitant]
     Dosage: UNKNOWN
  8. BECONASE [Concomitant]
     Dosage: UNKNOWN
  9. IBANDRONIC ACID [Concomitant]
  10. METHOTREXATE [Concomitant]
     Dosage: UNKNOWN
  11. CALCICHEW [Concomitant]
     Dosage: UNKNOWN

REACTIONS (1)
  - FEMORAL NECK FRACTURE [None]
